FAERS Safety Report 22147571 (Version 2)
Quarter: 2023Q2

REPORT INFORMATION
  Report Type: Other
  Country: GR (occurrence: GR)
  Receive Date: 20230328
  Receipt Date: 20230407
  Transmission Date: 20230722
  Serious: Yes (Death, Hospitalization)
  Sender: FDA-Public Use
  Company Number: GR-BoehringerIngelheim-2023-BI-226081

PATIENT
  Age: 59 Year
  Sex: Female

DRUGS (1)
  1. ALTEPLASE [Suspect]
     Active Substance: ALTEPLASE
     Indication: Prosthetic cardiac valve thrombosis
     Dosage: 25MG ALTEPLASE TWICE AND ANOTHER TWO DOSES OF ALTEPLASE (UNSPECIFIED DOSAGE)
     Route: 065

REACTIONS (4)
  - Haemoperitoneum [Fatal]
  - Drug ineffective [Unknown]
  - General physical health deterioration [Recovered/Resolved]
  - Off label use [Unknown]
